FAERS Safety Report 6968626-9 (Version None)
Quarter: 2010Q3

REPORT INFORMATION
  Report Type: 
  Country: None (occurrence: None)
  Receive Date: 20100907
  Receipt Date: 20100830
  Transmission Date: 20110219
  Serious: Yes (Other)
  Sender: FDA-Public Use
  Company Number: US-JNJFOC-20100901434

PATIENT
  Sex: Female
  Weight: 56.7 kg

DRUGS (1)
  1. ORTHO EVRA [Suspect]
     Indication: CONTRACEPTION
     Route: 062

REACTIONS (7)
  - ANXIETY [None]
  - APPLICATION SITE IRRITATION [None]
  - DEPRESSION [None]
  - FATIGUE [None]
  - MENORRHAGIA [None]
  - MENSTRUATION DELAYED [None]
  - METRORRHAGIA [None]
